FAERS Safety Report 9579855 (Version 1)
Quarter: 2013Q4

REPORT INFORMATION
  Report Type: Report from Study
  Country: US (occurrence: US)
  Receive Date: 20131002
  Receipt Date: 20131002
  Transmission Date: 20140711
  Serious: Yes (Death)
  Sender: FDA-Public Use
  Company Number: US-ROCHE-1283866

PATIENT
  Sex: Male

DRUGS (3)
  1. ALTEPLASE [Suspect]
     Indication: PRODUCT USED FOR UNKNOWN INDICATION
     Route: 065
     Dates: start: 20130803, end: 20130803
  2. ALBUTEROL [Concomitant]
     Dosage: 3ML NEBU INHALATION EVERY 4 HOURS
     Route: 055
  3. ASPIRIN [Concomitant]
     Dosage: DAILY WITH BREAKFAST
     Route: 065

REACTIONS (1)
  - Death [Fatal]
